FAERS Safety Report 11021818 (Version 1)
Quarter: 2015Q2

REPORT INFORMATION
  Report Type: Spontaneous
  Country: CN (occurrence: CN)
  Receive Date: 20150413
  Receipt Date: 20150413
  Transmission Date: 20150821
  Serious: Yes (Hospitalization)
  Sender: FDA-Public Use
  Company Number: CN-PFIZER INC-2015121699

PATIENT
  Age: 60 Year
  Sex: Male

DRUGS (1)
  1. CELEBREX [Suspect]
     Active Substance: CELECOXIB
     Indication: PAIN
     Dosage: 200 MG, SINGLE
     Route: 048
     Dates: start: 20150406, end: 20150406

REACTIONS (6)
  - Dyspnoea [Unknown]
  - Generalised erythema [Unknown]
  - Laryngeal oedema [Unknown]
  - Rash [Unknown]
  - Hypersensitivity [Unknown]
  - Generalised oedema [Unknown]

NARRATIVE: CASE EVENT DATE: 20150406
